FAERS Safety Report 8206083-5 (Version None)
Quarter: 2012Q1

REPORT INFORMATION
  Report Type: 
  Country: None (occurrence: None)
  Receive Date: 20120313
  Receipt Date: 20120301
  Transmission Date: 20120608
  Serious: No
  Sender: FDA-Public Use
  Company Number: US-B.I. PHARMACEUTICALS,INC./RIDGEFIELD-2011-BP-28082BP

PATIENT
  Sex: Male

DRUGS (7)
  1. DIGOXIN [Concomitant]
     Route: 048
  2. INHALERS [Concomitant]
     Indication: CHRONIC OBSTRUCTIVE PULMONARY DISEASE
     Route: 055
  3. PRADAXA [Suspect]
     Indication: CEREBROVASCULAR ACCIDENT PROPHYLAXIS
     Dosage: 300 MG
     Route: 048
     Dates: start: 20111021
  4. PRADAXA [Suspect]
     Indication: ATRIAL FIBRILLATION
  5. OXYGEN BY NASAL CANNULA [Concomitant]
     Indication: CHRONIC OBSTRUCTIVE PULMONARY DISEASE
     Route: 055
  6. LISINOPRIL [Concomitant]
     Indication: HYPERTENSION
     Dosage: 5 MG
     Route: 048
     Dates: start: 20111021
  7. PREDNISONE TAB [Concomitant]
     Route: 048

REACTIONS (6)
  - CONTUSION [None]
  - FALL [None]
  - HAEMATOCHEZIA [None]
  - CONSTIPATION [None]
  - LACERATION [None]
  - IMPAIRED HEALING [None]
